FAERS Safety Report 9805788 (Version 1)
Quarter: 2014Q1

REPORT INFORMATION
  Report Type: Report from Study
  Country: US (occurrence: US)
  Receive Date: 20140109
  Receipt Date: 20140109
  Transmission Date: 20141002
  Serious: Yes (Hospitalization, Other)
  Sender: FDA-Public Use
  Company Number: US-ABBVIE-14P-163-1185681-00

PATIENT
  Age: 63 Year
  Sex: Male
  Weight: 118.04 kg

DRUGS (17)
  1. HUMIRA [Suspect]
     Indication: RHEUMATOID ARTHRITIS
  2. METOPROLOL [Concomitant]
     Indication: HYPERTENSION
  3. CYMBALTA [Concomitant]
     Indication: DEPRESSION
  4. CYMBALTA [Concomitant]
     Indication: ARTHRALGIA
  5. ENALAPRIL [Concomitant]
     Indication: HYPERTENSION
  6. SIMVASTATIN [Concomitant]
     Indication: BLOOD CHOLESTEROL INCREASED
  7. POTASSIUM [Concomitant]
     Indication: ELECTROLYTE SUBSTITUTION THERAPY
  8. AZATHIOPRINE [Concomitant]
     Indication: RHEUMATOID ARTHRITIS
  9. LEFLUNOMIDE [Concomitant]
     Indication: RHEUMATOID ARTHRITIS
  10. OMEPRAZOLE [Concomitant]
     Indication: EPIGASTRIC DISCOMFORT
  11. OMEPRAZOLE [Concomitant]
     Indication: PROPHYLAXIS
  12. NORCO [Concomitant]
     Indication: PAIN
  13. AMBIEN [Concomitant]
     Indication: INSOMNIA
  14. CYCLOBENZAPRINE [Concomitant]
     Indication: MUSCLE SPASMS
  15. CYCLOBENZAPRINE [Concomitant]
     Indication: SPINAL OSTEOARTHRITIS
  16. GLYBURIDE [Concomitant]
     Indication: TYPE 2 DIABETES MELLITUS
  17. JANUVIA [Concomitant]
     Indication: TYPE 2 DIABETES MELLITUS

REACTIONS (13)
  - Mitral valve incompetence [Recovering/Resolving]
  - Joint dislocation [Recovered/Resolved]
  - Joint dislocation [Recovered/Resolved]
  - Joint dislocation [Recovered/Resolved]
  - Joint dislocation [Unknown]
  - Coronary artery occlusion [Recovered/Resolved]
  - Atrial fibrillation [Recovered/Resolved]
  - Myocardial infarction [Recovered/Resolved]
  - Heart rate increased [Recovered/Resolved]
  - Hypertension [Recovered/Resolved]
  - Cardiac failure congestive [Not Recovered/Not Resolved]
  - Fall [Recovered/Resolved]
  - Arthritis [Not Recovered/Not Resolved]
